FAERS Safety Report 6985640-8 (Version None)
Quarter: 2010Q3

REPORT INFORMATION
  Report Type: 
  Country: None (occurrence: None)
  Receive Date: 20100915
  Receipt Date: 20100907
  Transmission Date: 20110219
  Serious: Yes (Death)
  Sender: FDA-Public Use
  Company Number: GXKR2010US10166

PATIENT
  Age: 55 Year
  Sex: Male

DRUGS (13)
  1. GANCICLOVIR (NGX) [Suspect]
     Indication: CYTOMEGALOVIRUS VIRAEMIA
     Dosage: 5 MG/KG, Q12H
     Route: 042
  2. GANCICLOVIR (NGX) [Suspect]
     Dosage: 6 MG/KG/DAY, FROM MONDAY TO FRIDAY
     Route: 042
  3. GANCICLOVIR (NGX) [Suspect]
     Dosage: 5 MG/KG, Q12H
     Route: 042
  4. GANCICLOVIR (NGX) [Suspect]
     Dosage: 6 MG/KG/DAY, FROM MONDAY TO FRIDAY
     Route: 042
  5. CYCLOSPORINE [Suspect]
     Indication: PROPHYLAXIS AGAINST GRAFT VERSUS HOST DISEASE
     Route: 065
  6. MYCOPHENOLATE MOFETIL [Suspect]
     Indication: PROPHYLAXIS AGAINST GRAFT VERSUS HOST DISEASE
     Route: 065
  7. PREDNISONE (NGX) [Suspect]
     Indication: GRAFT VERSUS HOST DISEASE
     Dosage: 15 MG/DAY
     Route: 065
  8. ANTI-THYMOCYTE GLOBULIN NOS [Suspect]
     Indication: BONE MARROW CONDITIONING REGIMEN
     Dosage: 3 MG/KG, OVER DAYS 4 AND 3 BEFORE TRANSPLANTATION
     Route: 065
  9. IMMU-G [Suspect]
     Indication: PROPHYLAXIS AGAINST GRAFT VERSUS HOST DISEASE
     Dosage: 500 MG/KG, WEEKLY
     Route: 042
  10. FOSCARNET [Suspect]
     Indication: CYTOMEGALOVIRUS VIRAEMIA
     Dosage: 90 MG/KG, Q12H
     Route: 042
  11. CIDOFOVIR [Suspect]
     Indication: ENCEPHALITIS
     Route: 065
  12. BUSULFAN [Concomitant]
  13. FLUDARABINE [Concomitant]

REACTIONS (4)
  - DRUG RESISTANCE [None]
  - ENCEPHALITIS CYTOMEGALOVIRUS [None]
  - LETHARGY [None]
  - WEIGHT DECREASED [None]
